FAERS Safety Report 6909438-1 (Version None)
Quarter: 2010Q3

REPORT INFORMATION
  Report Type: 
  Country: None (occurrence: None)
  Receive Date: 20100805
  Receipt Date: 20100727
  Transmission Date: 20110219
  Serious: Yes (Hospitalization, Other)
  Sender: FDA-Public Use
  Company Number: US-BAXTER-2010BH017854

PATIENT
  Age: 68 Year
  Sex: Female

DRUGS (4)
  1. DIANEAL [Suspect]
     Indication: PERITONEAL DIALYSIS
     Route: 033
     Dates: end: 20100723
  2. DIANEAL [Suspect]
     Route: 033
     Dates: end: 20100723
  3. DIANEAL [Suspect]
     Indication: PERITONEAL DIALYSIS
     Route: 033
     Dates: end: 20100723
  4. DIANEAL [Suspect]
     Route: 033
     Dates: end: 20100723

REACTIONS (5)
  - DEHYDRATION [None]
  - DEVICE RELATED INFECTION [None]
  - FUNGAL PERITONITIS [None]
  - MALAISE [None]
  - PERITONITIS [None]
